FAERS Safety Report 5660767-1 (Version None)
Quarter: 2008Q1

REPORT INFORMATION
  Report Type: 
  Country: None (occurrence: None)
  Receive Date: 20080311
  Receipt Date: 20080303
  Transmission Date: 20080703
  Serious: Yes (Hospitalization, Other)
  Sender: FDA-Public Use
  Company Number: US-ELI_LILLY_AND_COMPANY-US200803000331

PATIENT
  Sex: Female
  Weight: 123.36 kg

DRUGS (14)
  1. BYETTA [Suspect]
     Dosage: 5 UG, 2/D
     Route: 058
     Dates: start: 20070201, end: 20070401
  2. BYETTA [Suspect]
     Dosage: 10 UG, 2/D
     Route: 058
     Dates: start: 20070401
  3. NITROGLYCERIN [Concomitant]
     Indication: CHEST PAIN
     Dosage: UNK, AS NEEDED
  4. GLUCOPHAGE [Concomitant]
     Dosage: 1000 UNK, 2/D
     Dates: start: 20060201
  5. VYTORIN [Concomitant]
     Indication: BLOOD CHOLESTEROL INCREASED
     Dosage: UNK, DAILY (1/D)
  6. PLENDIL [Concomitant]
     Indication: HYPERTENSION
     Dosage: 10 MG, DAILY (1/D)
  7. COREG [Concomitant]
     Indication: CARDIAC DISORDER
     Dosage: 12.5 MG, DAILY (1/D)
  8. CLONIDINE [Concomitant]
     Indication: BLOOD PRESSURE INCREASED
     Dosage: 0.2 MG, 2/D
  9. CYMBALTA [Concomitant]
     Dosage: 60 MG, UNK
  10. KLONOPIN [Concomitant]
     Indication: DEPRESSION
     Dosage: 1 MG, DAILY (1/D)
  11. REMERON [Concomitant]
     Indication: DEPRESSION
     Dosage: 15 MG, DAILY (1/D)
  12. RISPERDAL [Concomitant]
     Dosage: 2 MG, DAILY (1/D)
  13. ACIPHEX [Concomitant]
     Indication: GASTROOESOPHAGEAL REFLUX DISEASE
     Dosage: 15 MG, DAILY (1/D)
  14. NEURONTIN [Concomitant]
     Dosage: 300 MG, 3/D

REACTIONS (8)
  - BLOOD GLUCOSE INCREASED [None]
  - CEREBROVASCULAR ACCIDENT [None]
  - CHEST PAIN [None]
  - DECREASED APPETITE [None]
  - DRUG INEFFECTIVE [None]
  - INCREASED APPETITE [None]
  - STEAL SYNDROME [None]
  - WEIGHT DECREASED [None]
